FAERS Safety Report 4638710-3 (Version None)
Quarter: 2005Q2

REPORT INFORMATION
  Report Type: 
  Country: None (occurrence: None)
  Receive Date: 20050328
  Receipt Date: 20050126
  Transmission Date: 20051028
  Serious: Yes (Other)
  Sender: FDA-Public Use
  Company Number: US_0501111481

PATIENT
  Age: 8 Year
  Sex: Male
  Weight: 32 kg

DRUGS (1)
  1. STRATTERA [Suspect]
     Dosage: 40 MG/1 IN THE MORNING
     Route: 048

REACTIONS (1)
  - HEART RATE INCREASED [None]
